FAERS Safety Report 7500502-5 (Version None)
Quarter: 2011Q2

REPORT INFORMATION
  Report Type: 
  Country: None (occurrence: None)
  Receive Date: 20110524
  Receipt Date: 20110518
  Transmission Date: 20111010
  Serious: Yes (Other)
  Sender: FDA-Public Use
  Company Number: US-PFIZER INC-2011107522

PATIENT
  Sex: Female
  Weight: 62.585 kg

DRUGS (1)
  1. LATANOPROST [Suspect]
     Indication: GLAUCOMA
     Dosage: 2 GTT, 1X/DAY
     Dates: start: 20110401, end: 20110518

REACTIONS (2)
  - EYE DISORDER [None]
  - INTRAOCULAR PRESSURE INCREASED [None]
